FAERS Safety Report 5232407-7 (Version None)
Quarter: 2007Q1

REPORT INFORMATION
  Report Type: 
  Country: None (occurrence: None)
  Receive Date: 20070205
  Receipt Date: 20070125
  Transmission Date: 20070707
  Serious: Yes (Death, Hospitalization)
  Sender: FDA-Public Use
  Company Number: 2006-02675

PATIENT
  Age: 62 Year
  Sex: Male

DRUGS (13)
  1. VELCADE [Suspect]
     Indication: MULTIPLE MYELOMA
     Dosage: 1.91 MG, INTRAVENOUS
     Route: 042
     Dates: start: 20060919, end: 20060929
  2. DOXIL [Suspect]
     Indication: MULTIPLE MYELOMA
     Dosage: 18.00 MG, INTRAVENOUS
     Route: 042
     Dates: start: 20060919, end: 20060922
  3. DEXAMETHASONE [Suspect]
     Indication: MULTIPLE MYELOMA
     Dosage: 40.00 MG, ORAL
     Route: 048
     Dates: start: 20060919, end: 20060929
  4. FLUCONAZOLE [Concomitant]
  5. HERPESIN (ACICLOVIR) [Concomitant]
  6. ISRADIPINE [Concomitant]
  7. HELICID (OMEPRAZOLE) [Concomitant]
  8. FUROSEMIDE [Concomitant]
  9. FRAGMIN [Concomitant]
  10. SALINE MIXTURE (SODIUM CITRATE, CAMPHOR WATER, AMMONIUM ACETATE, SODIU [Concomitant]
  11. CEFEPIME [Concomitant]
  12. ERYMASA [Concomitant]
  13. SUMETROLIN [Concomitant]

REACTIONS (9)
  - ALVEOLITIS [None]
  - BLOOD LACTATE DEHYDROGENASE INCREASED [None]
  - COAGULOPATHY [None]
  - DIALYSIS [None]
  - INTERSTITIAL LUNG DISEASE [None]
  - LEUKOCYTOSIS [None]
  - PNEUMONIA [None]
  - PULMONARY OEDEMA [None]
  - THROMBOCYTOPENIA [None]
